FAERS Safety Report 24109216 (Version 1)
Quarter: 2024Q3

REPORT INFORMATION
  Report Type: Spontaneous
  Country: US (occurrence: US)
  Receive Date: 20240718
  Receipt Date: 20240718
  Transmission Date: 20241017
  Serious: No
  Sender: ROCHE
  Company Number: US-ROCHE-3525106

PATIENT
  Age: 66 Year
  Sex: Male

DRUGS (1)
  1. ERIVEDGE [Suspect]
     Active Substance: VISMODEGIB
     Indication: Basal cell carcinoma
     Route: 048

REACTIONS (8)
  - Fatigue [Unknown]
  - Constipation [Unknown]
  - Muscle spasms [Unknown]
  - Ageusia [Unknown]
  - Dysgeusia [Unknown]
  - Somnolence [Unknown]
  - Rash [Unknown]
  - Alopecia [Unknown]
